FAERS Safety Report 6582617-1 (Version None)
Quarter: 2010Q1

REPORT INFORMATION
  Report Type: 
  Country: None (occurrence: None)
  Receive Date: 20100212
  Receipt Date: 20100212
  Transmission Date: 20100710
  Serious: No
  Sender: FDA-Public Use
  Company Number: None

PATIENT
  Age: 83 Year
  Sex: Male
  Weight: 73 kg

DRUGS (1)
  1. OMEPRAZOLE [Suspect]
     Indication: GASTROINTESTINAL HAEMORRHAGE
     Dosage: 20 MG BID PO
     Route: 048
     Dates: start: 20070326, end: 20091002

REACTIONS (1)
  - THROMBOCYTOPENIA [None]
